FAERS Safety Report 10792239 (Version 2)
Quarter: 2015Q3

REPORT INFORMATION
  Report Type: Spontaneous
  Country: FR (occurrence: FR)
  Receive Date: 20150213
  Receipt Date: 20150907
  Transmission Date: 20151125
  Serious: Yes (Congenital Anomaly)
  Sender: FDA-Public Use
  Company Number: FR-SA-2015SA016276

PATIENT
  Age: 1 Day
  Sex: Female
  Weight: 2.48 kg

DRUGS (2)
  1. PENTASA [Suspect]
     Active Substance: MESALAMINE
     Indication: MATERNAL EXPOSURE TIMING UNSPECIFIED
     Route: 064
     Dates: start: 20140501, end: 20150121
  2. LOVENOX [Suspect]
     Active Substance: ENOXAPARIN SODIUM
     Indication: MATERNAL EXPOSURE TIMING UNSPECIFIED
     Route: 064
     Dates: start: 201411, end: 201501

REACTIONS (9)
  - Dysmorphism [Not Recovered/Not Resolved]
  - Bradycardia [Recovered/Resolved]
  - Ventricular septal defect [Recovered/Resolved]
  - Apnoea neonatal [Recovered/Resolved]
  - Atrial septal defect [Recovered/Resolved]
  - Talipes [Not Recovered/Not Resolved]
  - Congenital hand malformation [Not Recovered/Not Resolved]
  - Foetal exposure during pregnancy [Unknown]
  - Hypotonia neonatal [Not Recovered/Not Resolved]

NARRATIVE: CASE EVENT DATE: 20150121
